FAERS Safety Report 9283446 (Version 1)
Quarter: 2013Q2

REPORT INFORMATION
  Report Type: Spontaneous
  Country: US (occurrence: US)
  Receive Date: 20130510
  Receipt Date: 20130510
  Transmission Date: 20140414
  Serious: No
  Sender: FDA-Public Use
  Company Number: US-GLAXOSMITHKLINE-A1008823A

PATIENT
  Age: 57 Year
  Sex: Female

DRUGS (9)
  1. TYKERB [Suspect]
     Indication: BREAST CANCER
     Dosage: 1250MG PER DAY
  2. AMITRIPTYLINE [Concomitant]
  3. VITAMIN E [Concomitant]
  4. VITAMIN B12 [Concomitant]
  5. CALCIUM [Concomitant]
  6. OXYCONTIN [Concomitant]
  7. MULTIVITAMIN [Concomitant]
  8. HERCEPTIN [Concomitant]
  9. XGEVA [Concomitant]

REACTIONS (1)
  - Stomatitis [Unknown]
